FAERS Safety Report 7341314-5 (Version None)
Quarter: 2011Q1

REPORT INFORMATION
  Report Type: 
  Country: None (occurrence: None)
  Receive Date: 20110309
  Receipt Date: 20110218
  Transmission Date: 20110831
  Serious: Yes (Hospitalization)
  Sender: FDA-Public Use
  Company Number: US-SANOFI-AVENTIS-2010SA019026

PATIENT
  Age: 87 Year
  Sex: Female
  Weight: 52.61 kg

DRUGS (2)
  1. MULTAQ [Suspect]
     Indication: ATRIAL FIBRILLATION
     Route: 065
     Dates: start: 20100301, end: 20100319
  2. ALL OTHER THERAPEUTIC PRODUCTS [Concomitant]

REACTIONS (6)
  - HEPATOCELLULAR INJURY [None]
  - BLOOD CREATININE INCREASED [None]
  - GAIT DISTURBANCE [None]
  - ATRIAL FIBRILLATION [None]
  - FATIGUE [None]
  - MENTAL STATUS CHANGES [None]
